FAERS Safety Report 15695278 (Version 3)
Quarter: 2019Q1

REPORT INFORMATION
  Report Type: Report from Study
  Country: IL (occurrence: IL)
  Receive Date: 20181206
  Receipt Date: 20190305
  Transmission Date: 20190417
  Serious: No
  Sender: FDA-Public Use
  Company Number: IL-JNJFOC-20180513427

PATIENT
  Sex: Male

DRUGS (3)
  1. STELARA [Suspect]
     Active Substance: USTEKINUMAB
     Indication: PSORIASIS
     Route: 058
  2. STELARA [Suspect]
     Active Substance: USTEKINUMAB
     Indication: PSORIASIS
     Route: 058
  3. STELARA [Suspect]
     Active Substance: USTEKINUMAB
     Indication: PSORIASIS
     Route: 058
     Dates: start: 20180422

REACTIONS (9)
  - Product storage error [Unknown]
  - Asthenia [Not Recovered/Not Resolved]
  - Dizziness [Recovered/Resolved]
  - Liver function test increased [Unknown]
  - Injection site pain [Recovered/Resolved]
  - Psoriasis [Not Recovered/Not Resolved]
  - Product dose omission [Unknown]
  - Drug ineffective [Unknown]
  - Wrong technique in product usage process [Recovered/Resolved]

NARRATIVE: CASE EVENT DATE: 2018
